FAERS Safety Report 24624879 (Version 1)
Quarter: 2024Q4

REPORT INFORMATION
  Report Type: Spontaneous
  Country: FR (occurrence: FR)
  Receive Date: 20241115
  Receipt Date: 20241115
  Transmission Date: 20250115
  Serious: Yes (Other)
  Sender: TEVA
  Company Number: None

PATIENT
  Age: 32 Year
  Sex: Male

DRUGS (2)
  1. QUETIAPINE [Suspect]
     Active Substance: QUETIAPINE
     Indication: Product used for unknown indication
     Dosage: 3 TO 4 TABS OF 400MG
     Route: 048
     Dates: start: 2024
  2. ALCOHOL [Suspect]
     Active Substance: ALCOHOL
     Indication: Product used for unknown indication
     Dosage: 8 BEERS/D, ALCOHOL (DRINK)
     Route: 048
     Dates: start: 2019

REACTIONS (2)
  - Drug dependence [Not Recovered/Not Resolved]
  - Overdose [Recovered/Resolved]
